FAERS Safety Report 20733869 (Version 2)
Quarter: 2022Q2

REPORT INFORMATION
  Report Type: Spontaneous
  Country: JP (occurrence: JP)
  Receive Date: 20220421
  Receipt Date: 20220523
  Transmission Date: 20220721
  Serious: Yes (Hospitalization, Other)
  Sender: FDA-Public Use
  Company Number: JP-DSJP-DSJ-2021-134690

PATIENT
  Age: 71 Year
  Sex: Male

DRUGS (10)
  1. DENOSUMAB [Suspect]
     Active Substance: DENOSUMAB
     Indication: Metastases to bone
     Dosage: 120 MILLIGRAM
     Route: 058
     Dates: start: 201509
  2. DENOSUMAB [Suspect]
     Active Substance: DENOSUMAB
     Dosage: 120 MILLIGRAM, Q2MO
     Route: 058
     Dates: start: 201808
  3. CASODEX [Concomitant]
     Active Substance: BICALUTAMIDE
     Dosage: 80 MILLIGRAM, QD
     Route: 048
  4. CALCIUM CARBONATE\CHOLECALCIFEROL\MAGNESIUM CARBONATE [Concomitant]
     Active Substance: CALCIUM CARBONATE\CHOLECALCIFEROL\MAGNESIUM CARBONATE
     Dosage: 2 DOSAGE FORM, QD
     Route: 048
  5. PANCRELIPASE [Concomitant]
     Active Substance: PANCRELIPASE
     Dosage: 3 DOSAGE FORM, TID
     Route: 048
  6. MOSAPRIDE CITRATE [Concomitant]
     Active Substance: MOSAPRIDE CITRATE
     Dosage: 15 MILLIGRAM, TID
     Route: 048
  7. URSODIOL [Concomitant]
     Active Substance: URSODIOL
     Dosage: 300 MILLIGRAM, TID
     Route: 048
  8. FLUTAMIDE [Concomitant]
     Active Substance: FLUTAMIDE
     Dosage: UNK
     Route: 065
     Dates: start: 201705, end: 201903
  9. FLUTAMIDE [Concomitant]
     Active Substance: FLUTAMIDE
     Dosage: UNK
     Route: 065
     Dates: start: 201903
  10. XOFIGO [Concomitant]
     Active Substance: RADIUM RA-223 DICHLORIDE
     Dosage: UNK
     Route: 065
     Dates: start: 201712

REACTIONS (2)
  - Atypical femur fracture [Not Recovered/Not Resolved]
  - Off label use [Unknown]

NARRATIVE: CASE EVENT DATE: 20180801
